FAERS Safety Report 7716799-2 (Version None)
Quarter: 2011Q3

REPORT INFORMATION
  Report Type: 
  Country: None (occurrence: None)
  Receive Date: 20110829
  Receipt Date: 20110822
  Transmission Date: 20111222
  Serious: Yes (Life-Threatening, Other)
  Sender: FDA-Public Use
  Company Number: US-PURDUE-USA-2011-0074044

PATIENT
  Sex: Female

DRUGS (2)
  1. OXYCONTIN [Suspect]
     Indication: PRODUCT USED FOR UNKNOWN INDICATION
  2. METHAMPHETAMINE [Suspect]
     Indication: PRODUCT USED FOR UNKNOWN INDICATION

REACTIONS (8)
  - ORGAN FAILURE [None]
  - SEPTIC SHOCK [None]
  - CEREBROVASCULAR ACCIDENT [None]
  - DENTAL CARIES [None]
  - SUBSTANCE ABUSE [None]
  - INFECTION [None]
  - LEG AMPUTATION [None]
  - AORTIC VALVE REPLACEMENT [None]
